FAERS Safety Report 20539383 (Version 1)
Quarter: 2022Q1

REPORT INFORMATION
  Report Type: Spontaneous
  Country: JP (occurrence: JP)
  Receive Date: 20220302
  Receipt Date: 20220302
  Transmission Date: 20220423
  Serious: Yes (Death)
  Sender: FDA-Public Use
  Company Number: JP-JNJFOC-20210735528

PATIENT
  Sex: Female

DRUGS (1)
  1. ONEDURO [Suspect]
     Active Substance: FENTANYL
     Indication: Cancer pain
     Dosage: DOSE UNKNOWN
     Route: 062

REACTIONS (2)
  - Neoplasm malignant [Fatal]
  - Pruritus [Recovering/Resolving]
